FAERS Safety Report 4592804-X (Version None)
Quarter: 2005Q1

REPORT INFORMATION
  Report Type: 
  Country: None (occurrence: None)
  Receive Date: 20050228
  Receipt Date: 20050223
  Transmission Date: 20050727
  Serious: Yes (Other)
  Sender: FDA-Public Use
  Company Number: PHBS2005TR02806

PATIENT
  Sex: Female

DRUGS (1)
  1. MIACALCIN [Suspect]
     Indication: FOREARM FRACTURE
     Route: 045

REACTIONS (3)
  - BRONCHOSPASM [None]
  - RESPIRATORY DISORDER [None]
  - WHEEZING [None]
